FAERS Safety Report 7203636-8 (Version None)
Quarter: 2010Q4

REPORT INFORMATION
  Report Type: 
  Country: None (occurrence: None)
  Receive Date: 20101230
  Receipt Date: 20101228
  Transmission Date: 20110411
  Serious: Yes (Hospitalization)
  Sender: FDA-Public Use
  Company Number: FR-B.I. PHARMACEUTICALS,INC./RIDGEFIELD-2010-FF-01068FF

PATIENT
  Sex: Male

DRUGS (5)
  1. SPIRIVA [Suspect]
     Dosage: 18 MCG
     Route: 055
     Dates: start: 20100127
  2. COUMADIN [Suspect]
     Dosage: 5 MG
     Route: 048
     Dates: start: 20100127
  3. CARDENSIEL [Suspect]
     Dosage: 1.25 MG
     Route: 048
     Dates: start: 20100127
  4. CRESTOR [Suspect]
     Dosage: 5 MG
     Route: 048
     Dates: start: 20100127
  5. DOLIPRANE [Suspect]
     Dosage: ONE TO FOUR DAILY WHEN NEEDED
     Route: 048
     Dates: start: 20100127

REACTIONS (3)
  - EPISTAXIS [None]
  - IDIOPATHIC THROMBOCYTOPENIC PURPURA [None]
  - THROMBOCYTOPENIA [None]
